FAERS Safety Report 7297841-2 (Version None)
Quarter: 2011Q1

REPORT INFORMATION
  Report Type: 
  Country: None (occurrence: None)
  Receive Date: 20110217
  Receipt Date: 20110125
  Transmission Date: 20110831
  Serious: No
  Sender: FDA-Public Use
  Company Number: US-B.I. PHARMACEUTICALS,INC./RIDGEFIELD-2011-BP-02594BP

PATIENT
  Age: 78 Year
  Sex: Male

DRUGS (8)
  1. METOPROLOL [Concomitant]
     Indication: CARDIAC DISORDER
  2. SPIRIVA [Suspect]
     Indication: ASBESTOSIS
     Dosage: 18 MCG
     Route: 055
     Dates: start: 20100101
  3. VENTOLIN [Concomitant]
     Indication: ASBESTOSIS
  4. COUMADIN [Concomitant]
     Indication: CARDIAC DISORDER
  5. FUROSEMIDE [Concomitant]
     Indication: CARDIAC DISORDER
  6. ASPIRIN [Concomitant]
     Indication: CARDIAC DISORDER
  7. LISINOPRIL [Concomitant]
     Indication: HYPERTENSION
  8. COENZYME [Concomitant]
     Indication: CARDIAC DISORDER

REACTIONS (1)
  - DRUG INEFFECTIVE [None]
